FAERS Safety Report 8137902-9 (Version None)
Quarter: 2012Q1

REPORT INFORMATION
  Report Type: 
  Country: None (occurrence: None)
  Receive Date: 20120215
  Receipt Date: 20120210
  Transmission Date: 20120608
  Serious: Yes (Hospitalization, Other)
  Sender: FDA-Public Use
  Company Number: RU-SANOFI-AVENTIS-2012SA009104

PATIENT
  Age: 53 Year
  Sex: Female

DRUGS (5)
  1. PERINDOPRIL [Concomitant]
     Indication: CORONARY ARTERY DISEASE
     Dates: start: 20110101, end: 20110101
  2. INDAPAMIDE [Suspect]
     Indication: HYPERTENSION
     Route: 048
     Dates: start: 20110801
  3. ACETYLSALICYLIC ACID/MAGNESIUM [Concomitant]
     Indication: CORONARY ARTERY DISEASE
     Dates: start: 20110101, end: 20110101
  4. AMLODIPINE [Concomitant]
     Indication: CORONARY ARTERY DISEASE
     Dates: start: 20110101
  5. VASILIP [Concomitant]
     Indication: CORONARY ARTERY DISEASE
     Dates: start: 20110101, end: 20110101

REACTIONS (2)
  - WEIGHT DECREASED [None]
  - MUSCULAR WEAKNESS [None]
